FAERS Safety Report 4823282-0 (Version None)
Quarter: 2005Q4

REPORT INFORMATION
  Report Type: 
  Country: None (occurrence: None)
  Receive Date: 20051104
  Receipt Date: 20051025
  Transmission Date: 20060501
  Serious: Yes (Other)
  Sender: FDA-Public Use
  Company Number: 2005078588

PATIENT
  Sex: Female
  Weight: 51.7101 kg

DRUGS (8)
  1. DILANTIN KAPSEAL [Suspect]
     Indication: CONVULSION
     Dosage: 100MG AM; 230MG PM. (2 IN 1 D), ORAL
     Route: 048
  2. DILANTIN KAPSEAL [Suspect]
     Indication: CONVULSION
     Dosage: 50 MG NOON; (1 IN 1 D)
  3. CITRACAL (CALCIUM CITRATE) [Suspect]
     Indication: MINERAL SUPPLEMENTATION
  4. MULTIVITAMIN [Suspect]
     Indication: ILL-DEFINED DISORDER
     Dosage: ORAL
     Route: 048
  5. MYSOLINE ^ASTRA^ (PRIMIDONE) [Concomitant]
  6. VITAMIN B6 (VITAMIN B6) [Concomitant]
  7. VITAMIN E [Concomitant]
  8. GLUCOSAMINE /CHONDROITIN SULFATES (ASCORBIC ACID, CHONDROTIN SULFATE, [Concomitant]

REACTIONS (8)
  - ANTICONVULSANT DRUG LEVEL INCREASED [None]
  - ARTHRITIS [None]
  - BRAIN LOBECTOMY [None]
  - CONVULSION [None]
  - DISEASE RECURRENCE [None]
  - DIZZINESS [None]
  - DRUG INTERACTION [None]
  - THERAPY NON-RESPONDER [None]
